FAERS Safety Report 22788795 (Version 2)
Quarter: 2023Q4

REPORT INFORMATION
  Report Type: Spontaneous
  Country: US (occurrence: US)
  Receive Date: 20230804
  Receipt Date: 20231011
  Transmission Date: 20240110
  Serious: Yes (Hospitalization, Other)
  Sender: FDA-Public Use
  Company Number: US-ELI_LILLY_AND_COMPANY-US202308001502

PATIENT
  Sex: Female
  Weight: 63 kg

DRUGS (2)
  1. VERZENIO [Suspect]
     Active Substance: ABEMACICLIB
     Indication: Invasive lobular breast carcinoma
     Dosage: 150 MG, BID
     Route: 048
     Dates: start: 20220715, end: 20230624
  2. VERZENIO [Suspect]
     Active Substance: ABEMACICLIB
     Dosage: 150 UNK
     Route: 048
     Dates: start: 20230829

REACTIONS (3)
  - Embolism venous [Recovered/Resolved]
  - Deep vein thrombosis [Unknown]
  - Pulmonary embolism [Unknown]

NARRATIVE: CASE EVENT DATE: 20230615
